FAERS Safety Report 6840138-2 (Version None)
Quarter: 2010Q3

REPORT INFORMATION
  Report Type: 
  Country: None (occurrence: None)
  Receive Date: 20100714
  Receipt Date: 20100705
  Transmission Date: 20110219
  Serious: Yes (Disabling, Other)
  Sender: FDA-Public Use
  Company Number: BR-ABBOTT-10P-020-0655740-00

PATIENT
  Sex: Female
  Weight: 70 kg

DRUGS (15)
  1. HUMIRA [Suspect]
     Indication: CROHN'S DISEASE
     Dosage: INDUCTION DOSE: 160MG - 80MG, 15 DAYS LATER
     Route: 058
     Dates: start: 20100301, end: 20100401
  2. HUMIRA [Suspect]
     Indication: PSORIASIS
     Dates: start: 20100501
  3. HUMAN ALBUMIN-INSULIN [Concomitant]
     Indication: DIABETES MELLITUS
     Route: 058
  4. REGULAR INSULIN [Concomitant]
     Indication: DIABETES MELLITUS
     Route: 058
  5. METFORMIN [Concomitant]
     Indication: DIABETES MELLITUS
     Route: 048
  6. SIMVASTATIN [Concomitant]
     Indication: BLOOD CHOLESTEROL INCREASED
     Route: 048
  7. CAPTOPRIL [Concomitant]
     Indication: HYPERTENSION
     Route: 048
  8. ATENOLOL [Concomitant]
     Indication: ARRHYTHMIA
     Route: 048
  9. OMEPRAZOLE [Concomitant]
     Indication: GASTRIC DISORDER
     Route: 048
  10. MESALAZINE [Concomitant]
     Indication: CROHN'S DISEASE
     Route: 048
     Dates: start: 20020101
  11. MESALAZINE [Concomitant]
     Route: 054
  12. MERCAPTOPURINE [Concomitant]
     Indication: CROHN'S DISEASE
     Route: 048
  13. UNKNOWN DIURETIC [Concomitant]
     Indication: DIURETIC THERAPY
     Route: 048
  14. CALDE [Concomitant]
     Indication: OSTEOPOROSIS
  15. ALENDRONATE SODIUM [Concomitant]
     Indication: OSTEOPOROSIS

REACTIONS (9)
  - BLOOD GLUCOSE INCREASED [None]
  - BLOOD TRIGLYCERIDES INCREASED [None]
  - DEAFNESS [None]
  - DRUG INEFFECTIVE [None]
  - EAR DISCOMFORT [None]
  - EAR HAEMORRHAGE [None]
  - OTITIS MEDIA [None]
  - PRURITUS [None]
  - SINUSITIS [None]
